FAERS Safety Report 7478801-5 (Version None)
Quarter: 2011Q2

REPORT INFORMATION
  Report Type: 
  Country: None (occurrence: None)
  Receive Date: 20110513
  Receipt Date: 20110506
  Transmission Date: 20111010
  Serious: Yes (Other)
  Sender: FDA-Public Use
  Company Number: CA-ROCHE-771598

PATIENT
  Sex: Female
  Weight: 86.2 kg

DRUGS (4)
  1. CALCIUM [Concomitant]
  2. ACTEMRA [Suspect]
     Route: 042
     Dates: start: 20110506
  3. ACTEMRA [Suspect]
     Indication: RHEUMATOID ARTHRITIS
     Route: 042
     Dates: start: 20101110, end: 20110203
  4. ACETAMINOPHEN [Concomitant]
     Dosage: AS NEEDED

REACTIONS (3)
  - FOOT OPERATION [None]
  - IMPAIRED HEALING [None]
  - SKIN DISCOLOURATION [None]
